FAERS Safety Report 6769316-8 (Version None)
Quarter: 2010Q2

REPORT INFORMATION
  Report Type: 
  Country: None (occurrence: None)
  Receive Date: 20100615
  Receipt Date: 20100602
  Transmission Date: 20101027
  Serious: Yes (Other)
  Sender: FDA-Public Use
  Company Number: GB-RANBAXY-2010RR-34481

PATIENT
  Age: 66 Year
  Sex: Male

DRUGS (10)
  1. SIMVASTATIN [Suspect]
     Dosage: 40 MG, UNK
  2. FUROSEMIDE [Concomitant]
     Dosage: 40 MG, UNK
  3. SALBUTAMOL [Concomitant]
     Route: 055
  4. SENNA [Concomitant]
  5. AMLODIPINE [Concomitant]
     Dosage: 10 MG, UNK
  6. SYMBICORT [Concomitant]
  7. METFORMIN HCL [Concomitant]
     Dosage: 500 MG, UNK
  8. PERINDOPRIL [Concomitant]
     Dosage: 4 MG, UNK
  9. LACTAPROL [Concomitant]
     Dosage: 500 MG, UNK
  10. XENICAL [Concomitant]

REACTIONS (2)
  - MYALGIA [None]
  - OEDEMA PERIPHERAL [None]
